FAERS Safety Report 13929150 (Version 1)
Quarter: 2017Q3

REPORT INFORMATION
  Report Type: Spontaneous
  Country: US (occurrence: US)
  Receive Date: 20170901
  Receipt Date: 20170901
  Transmission Date: 20171127
  Serious: No
  Sender: FDA-Public Use
  Company Number: US-ASTRAZENECA-2017SE88381

PATIENT
  Age: 28 Year
  Sex: Male
  Weight: 105.7 kg

DRUGS (1)
  1. NEXIUM 24HR [Suspect]
     Active Substance: ESOMEPRAZOLE MAGNESIUM
     Indication: DYSPEPSIA
     Dosage: 20MG ONE CAPSULE
     Route: 048
     Dates: start: 20170823

REACTIONS (6)
  - Dizziness [Recovering/Resolving]
  - Product physical issue [Unknown]
  - Somnolence [Recovering/Resolving]
  - Vomiting [Unknown]
  - Poor quality drug administered [Unknown]
  - Nervousness [Unknown]

NARRATIVE: CASE EVENT DATE: 20170823
